FAERS Safety Report 16128299 (Version 1)
Quarter: 2019Q1

REPORT INFORMATION
  Report Type: Spontaneous
  Country: US (occurrence: US)
  Receive Date: 20190328
  Receipt Date: 20190328
  Transmission Date: 20190418
  Serious: Yes (Hospitalization)
  Sender: FDA-Public Use
  Company Number: US-TEVA-2019-US-1029990

PATIENT
  Age: 42 Year
  Sex: Female

DRUGS (4)
  1. TENECTEPLASE [Concomitant]
     Active Substance: TENECTEPLASE
     Indication: PULMONARY EMBOLISM
     Route: 065
  2. HEPARIN [Suspect]
     Active Substance: HEPARIN SODIUM
     Indication: THROMBOSIS PROPHYLAXIS
     Dosage: 5000 UNITS AT BED TIME
     Route: 065
  3. ARGATROBAN. [Suspect]
     Active Substance: ARGATROBAN
     Indication: PULMONARY EMBOLISM
     Dosage: 2 MICROG/KG/MINUTES
     Route: 042
  4. EPINEPHRINE. [Concomitant]
     Active Substance: EPINEPHRINE
     Indication: PULSELESS ELECTRICAL ACTIVITY
     Route: 065

REACTIONS (2)
  - Heparin-induced thrombocytopenia [Unknown]
  - Hypofibrinogenaemia [Recovered/Resolved]
